FAERS Safety Report 14368958 (Version 1)
Quarter: 2018Q1

REPORT INFORMATION
  Report Type: Spontaneous
  Country: US (occurrence: US)
  Receive Date: 20180109
  Receipt Date: 20180109
  Transmission Date: 20180509
  Serious: No
  Sender: FDA-Public Use
  Company Number: US-DRREDDYS-USA/USA/17/0087951

PATIENT
  Age: 58 Year
  Sex: Female
  Weight: 58.96 kg

DRUGS (2)
  1. NICOTINE. [Suspect]
     Active Substance: NICOTINE
     Indication: SMOKING CESSATION THERAPY
     Route: 065
  2. NICOTINE. [Suspect]
     Active Substance: NICOTINE
     Route: 065
     Dates: start: 2014

REACTIONS (5)
  - No adverse event [Unknown]
  - Expired product administered [Unknown]
  - Influenza [Unknown]
  - Treatment noncompliance [Unknown]
  - Overdose [Unknown]
